FAERS Safety Report 5394594-X (Version None)
Quarter: 2007Q3

REPORT INFORMATION
  Report Type: 
  Country: None (occurrence: None)
  Receive Date: 20070720
  Receipt Date: 20070706
  Transmission Date: 20080115
  Serious: Yes (Hospitalization)
  Sender: FDA-Public Use
  Company Number: 2007001229

PATIENT
  Age: 44 Year
  Sex: Female

DRUGS (6)
  1. ERLOTINIB (TABLET) [Suspect]
     Indication: RENAL CELL CARCINOMA STAGE UNSPECIFIED
     Dosage: 75 MG (QD), ORAL
     Route: 048
     Dates: end: 20070610
  2. PEGINTERFERON ALFA-2B (INJECTION) [Suspect]
     Indication: RENAL CELL CARCINOMA STAGE UNSPECIFIED
     Dosage: 147 MCG (QW), SUBCUTANEOUS
     Route: 058
  3. SUTENT [Suspect]
     Indication: RENAL CELL CARCINOMA STAGE UNSPECIFIED
     Dosage: 37.5 MG (QD), ORAL
     Route: 048
  4. CELEXA [Concomitant]
  5. VERAPAMIL [Concomitant]
  6. NORTRIPTYLINE HCL [Concomitant]

REACTIONS (9)
  - CHILLS [None]
  - DIARRHOEA [None]
  - GINGIVAL BLEEDING [None]
  - HYPOKALAEMIA [None]
  - HYPONATRAEMIA [None]
  - NAUSEA [None]
  - PANCYTOPENIA [None]
  - PYREXIA [None]
  - VOMITING [None]
